FAERS Safety Report 5086779-7 (Version None)
Quarter: 2006Q3

REPORT INFORMATION
  Report Type: 
  Country: None (occurrence: None)
  Receive Date: 20060818
  Receipt Date: 20060816
  Transmission Date: 20061208
  Serious: Yes (Other)
  Sender: FDA-Public Use
  Company Number: 007709

PATIENT
  Age: 27 Year
  Sex: Female

DRUGS (2)
  1. CLARAVIS [Suspect]
     Dosage: 40 MG, BID, ORAL
     Route: 048
     Dates: start: 20051109, end: 20060607
  2. ORAL CONTRACEPTIVE NOS (ORAL CONTRACEPTIVE NOS) [Concomitant]

REACTIONS (3)
  - ABORTION INDUCED [None]
  - PREGNANCY ON ORAL CONTRACEPTIVE [None]
  - UNINTENDED PREGNANCY [None]
